FAERS Safety Report 6578093-5 (Version None)
Quarter: 2010Q1

REPORT INFORMATION
  Report Type: 
  Country: None (occurrence: None)
  Receive Date: 20100211
  Receipt Date: 20100201
  Transmission Date: 20100710
  Serious: Yes (Hospitalization)
  Sender: FDA-Public Use
  Company Number: DE-GILEAD-E2B_00000573

PATIENT
  Age: 45 Year
  Sex: Female
  Weight: 77 kg

DRUGS (3)
  1. AMBRISENTAN [Suspect]
     Indication: VENOOCCLUSIVE DISEASE
     Dosage: 5MG PER DAY
     Route: 048
     Dates: start: 20090623, end: 20090630
  2. SILDENAFIL CITRATE [Suspect]
     Route: 065
  3. ILOPROST [Concomitant]
     Route: 065

REACTIONS (1)
  - PLEURAL EFFUSION [None]
